FAERS Safety Report 7347235-6 (Version None)
Quarter: 2011Q1

REPORT INFORMATION
  Report Type: 
  Country: None (occurrence: None)
  Receive Date: 20110311
  Receipt Date: 20110301
  Transmission Date: 20110831
  Serious: Yes (Hospitalization)
  Sender: FDA-Public Use
  Company Number: CA-ELI_LILLY_AND_COMPANY-CA201103000124

PATIENT
  Sex: Female
  Weight: 77 kg

DRUGS (7)
  1. SYNTHROID [Concomitant]
     Dosage: 0.75 MG, UNK
  2. NOVO-HYDROXYZIN [Concomitant]
     Dosage: 50 D/F, AS NEEDED
  3. DESYREL [Concomitant]
     Dosage: 150 G, EACH EVENING
  4. CELEXA [Concomitant]
     Dosage: 50 MG, UNK
  5. ATIVAN [Concomitant]
     Dosage: 1 MG, AS NEEDED
  6. DESYREL [Concomitant]
     Dosage: 100 G, EACH EVENING
  7. ZYPREXA [Suspect]
     Dosage: 10 MG, EACH EVENING
     Route: 048
     Dates: start: 20030609

REACTIONS (11)
  - DYSLIPIDAEMIA [None]
  - FUNGAL INFECTION [None]
  - HYPERGLYCAEMIA [None]
  - URINARY TRACT INFECTION [None]
  - OFF LABEL USE [None]
  - HYPERTENSION [None]
  - DIABETES MELLITUS [None]
  - PANCREATITIS [None]
  - CHOLECYSTITIS [None]
  - HEPATITIS [None]
  - HEPATIC STEATOSIS [None]
